FAERS Safety Report 5616320-9 (Version None)
Quarter: 2008Q1

REPORT INFORMATION
  Report Type: 
  Country: None (occurrence: None)
  Receive Date: 20080204
  Receipt Date: 20080128
  Transmission Date: 20080703
  Serious: Yes (Death)
  Sender: FDA-Public Use
  Company Number: 023150

PATIENT
  Age: 51 Year
  Sex: Male

DRUGS (1)
  1. ADDERALL(DEXTROAMPHETAMINE SACCHRATE, AMPHETAMINE ASPARTATE, DEXTROAMP [Suspect]
     Dosage: ORAL
     Route: 048

REACTIONS (1)
  - DEATH [None]
